FAERS Safety Report 8447655-2 (Version None)
Quarter: 2012Q2

REPORT INFORMATION
  Report Type: 
  Country: None (occurrence: None)
  Receive Date: 20120619
  Receipt Date: 20120614
  Transmission Date: 20120825
  Serious: Yes (Life-Threatening)
  Sender: FDA-Public Use
  Company Number: FR-PFIZER INC-2012143051

PATIENT
  Age: 35 Year
  Sex: Male

DRUGS (2)
  1. SUTENT [Suspect]
     Dosage: 50 MG, 4 WEEKS OUT OF 6
     Route: 048
     Dates: start: 20101201, end: 20111101
  2. TRANDATE [Concomitant]
     Indication: HYPERTENSION

REACTIONS (1)
  - MYOCARDIAL INFARCTION [None]
